FAERS Safety Report 8415729-8 (Version None)
Quarter: 2012Q2

REPORT INFORMATION
  Report Type: 
  Country: None (occurrence: None)
  Receive Date: 20120606
  Receipt Date: 20120528
  Transmission Date: 20120825
  Serious: Yes (Hospitalization)
  Sender: FDA-Public Use
  Company Number: BR-ASTRAZENECA-2012SE35203

PATIENT
  Age: 58 Year
  Sex: Male
  Weight: 90 kg

DRUGS (7)
  1. SYMBICORT [Suspect]
     Indication: ASTHMA
     Dosage: 160/4.5 MCG DAILY
     Route: 055
     Dates: start: 20100101
  2. SIMVASTATIN [Concomitant]
     Indication: BLOOD CHOLESTEROL INCREASED
  3. ENALAPRIL MALEATE [Concomitant]
     Indication: HYPERTENSION
     Route: 048
  4. INSULIN [Concomitant]
     Indication: DIABETES MELLITUS
  5. METFORMIN HCL [Concomitant]
     Indication: DIABETES MELLITUS
  6. SYMBICORT [Suspect]
     Indication: BRONCHITIS
     Dosage: 160/4.5 MCG DAILY
     Route: 055
     Dates: start: 20100101
  7. BRILINTA [Suspect]
     Indication: ANGIOPLASTY
     Route: 048
     Dates: start: 20120301

REACTIONS (3)
  - OFF LABEL USE [None]
  - CARDIAC VALVE DISEASE [None]
  - BLOOD TRIGLYCERIDES INCREASED [None]
